FAERS Safety Report 21759877 (Version 1)
Quarter: 2022Q4

REPORT INFORMATION
  Report Type: Spontaneous
  Country: US (occurrence: US)
  Receive Date: 20221221
  Receipt Date: 20221221
  Transmission Date: 20230112
  Serious: No
  Sender: FDA-Public Use
  Company Number: US-JNJFOC-20221224321

PATIENT
  Age: 2 Year
  Sex: Female
  Weight: 26 kg

DRUGS (3)
  1. BENADRYL [Suspect]
     Active Substance: DIPHENHYDRAMINE HYDROCHLORIDE
     Indication: Accidental exposure to product by child
     Dosage: APPROXIMATELY 3QTR FULL
     Route: 048
     Dates: start: 20221128
  2. CHILDRENS MOTRIN [Suspect]
     Active Substance: IBUPROFEN
     Indication: Accidental exposure to product by child
     Route: 048
  3. HYLAND^S 4 KIDS COLD^N COUGH [Concomitant]
     Indication: Product used for unknown indication
     Route: 065

REACTIONS (2)
  - Accidental exposure to product by child [Unknown]
  - Product container issue [Unknown]

NARRATIVE: CASE EVENT DATE: 20221128
